FAERS Safety Report 19184494 (Version 3)
Quarter: 2024Q4

REPORT INFORMATION
  Report Type: Spontaneous
  Country: ES (occurrence: ES)
  Receive Date: 20210427
  Receipt Date: 20241220
  Transmission Date: 20250115
  Serious: Yes (Hospitalization, Other)
  Sender: SANOFI AVENTIS
  Company Number: ES-SA-2021SA128400

PATIENT
  Age: 60 Year
  Sex: Female
  Weight: 60 kg

DRUGS (9)
  1. DOCETAXEL [Interacting]
     Active Substance: DOCETAXEL
     Indication: Triple negative breast cancer
     Dosage: 75 MG/M2, QCY
  2. DOCETAXEL [Interacting]
     Active Substance: DOCETAXEL
     Dosage: 75 MG/M2, QCY
  3. DOCETAXEL [Interacting]
     Active Substance: DOCETAXEL
     Dosage: 70 MG/M2
  4. FLUVOXAMINE [Interacting]
     Active Substance: FLUVOXAMINE
     Dosage: UNK
  5. CYCLOPHOSPHAMIDE [Concomitant]
     Active Substance: CYCLOPHOSPHAMIDE
     Indication: Triple negative breast cancer
     Dosage: 600 MG/M2, QOW
  6. EPIRUBICIN [Concomitant]
     Active Substance: EPIRUBICIN
     Indication: Triple negative breast cancer
     Dosage: 95 MG/M2, QOW
  7. CARBOPLATIN [Concomitant]
     Active Substance: CARBOPLATIN
     Indication: Triple negative breast cancer
     Dosage: AUC 5
  8. PEGFILGRASTIM [Concomitant]
     Active Substance: PEGFILGRASTIM
     Indication: Triple negative breast cancer
     Dosage: 6 MG, QCY
  9. PEGFILGRASTIM [Concomitant]
     Active Substance: PEGFILGRASTIM
     Dosage: 6 MG, ON DAY +2

REACTIONS (8)
  - Pseudomonas infection [Unknown]
  - Toxicity to various agents [Unknown]
  - Syncope [Unknown]
  - Asthenia [Unknown]
  - Decreased appetite [Unknown]
  - Neutropenia [Unknown]
  - Septic shock [Unknown]
  - Drug interaction [Unknown]
